FAERS Safety Report 4954570-5 (Version None)
Quarter: 2006Q1

REPORT INFORMATION
  Report Type: 
  Country: None (occurrence: None)
  Receive Date: 20060327
  Receipt Date: 20060316
  Transmission Date: 20060701
  Serious: Yes (Hospitalization, Other)
  Sender: FDA-Public Use
  Company Number: JP-JNJFOC-20060305461

PATIENT
  Age: 4 Decade
  Sex: Male

DRUGS (7)
  1. RISPERDAL [Suspect]
     Route: 048
  2. RISPERDAL [Suspect]
     Indication: DRUG USE FOR UNKNOWN INDICATION
     Route: 048
  3. CHLORPROMAZINE HCL [Suspect]
     Indication: DRUG USE FOR UNKNOWN INDICATION
     Route: 048
  4. VALPROATE SODIUM [Concomitant]
  5. LEVOMEPROMAZINE [Concomitant]
  6. HYPNOTIC DRUG [Concomitant]
  7. TRIAZOLAM [Concomitant]
     Route: 048

REACTIONS (2)
  - AGRANULOCYTOSIS [None]
  - PLATELET COUNT DECREASED [None]
